FAERS Safety Report 5076859-4 (Version None)
Quarter: 2006Q3

REPORT INFORMATION
  Report Type: 
  Country: None (occurrence: None)
  Receive Date: 20060807
  Receipt Date: 20060721
  Transmission Date: 20061208
  Serious: Yes (Hospitalization)
  Sender: FDA-Public Use
  Company Number: TRP_0674_2005

PATIENT
  Age: 52 Year
  Sex: Female
  Weight: 63.5036 kg

DRUGS (22)
  1. RIBASPHERE [Suspect]
     Indication: HEPATITIS C
     Dosage: DF PO
     Route: 048
     Dates: start: 20050925
  2. PEG-INTRON [Suspect]
     Indication: HEPATITIS C
     Dosage: DF SC
     Route: 058
     Dates: start: 20050925
  3. MS CONTIN [Suspect]
     Dosage: DF
     Dates: start: 20051001
  4. MS CONTIN [Suspect]
     Dosage: DF
     Dates: end: 20051001
  5. GLUCOSAMINE / CHONDROTIN [Concomitant]
  6. HYDROMORPHONE HCL [Concomitant]
  7. INDERAL [Concomitant]
  8. LECITHIN [Concomitant]
  9. LEVOTHYROXINE SODIUM [Concomitant]
  10. MORPHINE [Concomitant]
  11. MULTI-VITAMIN [Concomitant]
  12. OMEGA 3 [Concomitant]
  13. PROMETHAZINE HCL [Concomitant]
  14. VITAMIN A AND D [Concomitant]
  15. VITAMIN B COMPLEX CAP [Concomitant]
  16. ASCORBIC ACID [Concomitant]
  17. VITAMIN E [Concomitant]
  18. WELLBUTRIN [Concomitant]
  19. MORPHINE SULFATE [Concomitant]
  20. FLAXSEED OIL [Concomitant]
  21. CALCIUM GLUCONATE [Concomitant]
  22. ALBUTEROL [Concomitant]

REACTIONS (30)
  - ALOPECIA [None]
  - ASTHMA [None]
  - BLOOD POTASSIUM DECREASED [None]
  - BRONCHITIS [None]
  - CRYING [None]
  - DEHYDRATION [None]
  - DELIRIUM [None]
  - DENTAL CARIES [None]
  - DISORIENTATION [None]
  - DISTURBANCE IN ATTENTION [None]
  - DRUG SCREEN POSITIVE [None]
  - DRUG WITHDRAWAL SYNDROME [None]
  - DYSKINESIA [None]
  - FEELING HOT [None]
  - INJECTION SITE BRUISING [None]
  - INJECTION SITE ERYTHEMA [None]
  - INJECTION SITE MASS [None]
  - LOSS OF CONSCIOUSNESS [None]
  - MEMORY IMPAIRMENT [None]
  - MUSCULAR WEAKNESS [None]
  - PAIN [None]
  - PARAESTHESIA [None]
  - PNEUMONIA [None]
  - RED BLOOD CELL COUNT DECREASED [None]
  - SCREAMING [None]
  - SOMNOLENCE [None]
  - TREMOR [None]
  - VISION BLURRED [None]
  - WEIGHT DECREASED [None]
  - WHITE BLOOD CELL COUNT DECREASED [None]
